FAERS Safety Report 18340539 (Version 1)
Quarter: 2020Q4

REPORT INFORMATION
  Report Type: Report from Study
  Country: CA (occurrence: CA)
  Receive Date: 20201002
  Receipt Date: 20201002
  Transmission Date: 20210113
  Serious: Yes (Disabling)
  Sender: FDA-Public Use
  Company Number: CA-NALPROPION PHARMACEUTICALS INC.-2020-011045

PATIENT

DRUGS (6)
  1. CONTRAVE [Suspect]
     Active Substance: BUPROPION HYDROCHLORIDE\NALTREXONE HYDROCHLORIDE
     Dosage: 90 MG/ 8 MG. 06/SEP/2020 (APPROXIMATELY)
     Route: 048
     Dates: start: 202009
  2. CONTRAVE [Suspect]
     Active Substance: BUPROPION HYDROCHLORIDE\NALTREXONE HYDROCHLORIDE
     Dosage: 90 MG/ 8 MG. 2 TABLETS IN THE MORNING AND 1 TABLET IN THE EVENING
     Route: 048
     Dates: start: 20200814, end: 20200820
  3. HUMERA [Concomitant]
     Active Substance: ADALIMUMAB
     Indication: HIDRADENITIS
     Dosage: 40 MG,1 IN 1 WK
     Route: 058
  4. CONTRAVE [Suspect]
     Active Substance: BUPROPION HYDROCHLORIDE\NALTREXONE HYDROCHLORIDE
     Dosage: 90 MG/ 8 MG. 1 TABLET IN THE MORNING AND 1 TABLET IN THE EVENING
     Route: 048
     Dates: start: 20200807, end: 20200813
  5. CONTRAVE [Suspect]
     Active Substance: BUPROPION HYDROCHLORIDE\NALTREXONE HYDROCHLORIDE
     Dosage: 90 MG/ 8 MG. 2 TABLETS IN THE MORNING AND 2 TABLET IN THE EVENING
     Route: 048
     Dates: start: 20200821, end: 20200831
  6. CONTRAVE [Suspect]
     Active Substance: BUPROPION HYDROCHLORIDE\NALTREXONE HYDROCHLORIDE
     Indication: WEIGHT CONTROL
     Dosage: 90 MG/ 8 MG. IN THE MORNING
     Route: 048
     Dates: start: 20200731, end: 20200806

REACTIONS (9)
  - Gait inability [Unknown]
  - Furuncle [Not Recovered/Not Resolved]
  - Depression [Not Recovered/Not Resolved]
  - Arthralgia [Unknown]
  - Drug titration error [Unknown]
  - Acne [Recovering/Resolving]
  - Stress [Not Recovered/Not Resolved]
  - Ill-defined disorder [Unknown]
  - Back injury [Unknown]

NARRATIVE: CASE EVENT DATE: 2020
